FAERS Safety Report 25528804 (Version 2)
Quarter: 2025Q4

REPORT INFORMATION
  Report Type: Report from Study
  Country: CA (occurrence: CA)
  Receive Date: 20250708
  Receipt Date: 20251215
  Transmission Date: 20260118
  Serious: Yes (Other)
  Sender: CSL BEHRING
  Company Number: CA-BEH-2025200562

PATIENT
  Age: 90 Year
  Sex: Male
  Weight: 61.7 kg

DRUGS (3)
  1. HIZENTRA [Suspect]
     Active Substance: HUMAN IMMUNOGLOBULIN G
     Indication: Necrotising myositis
     Dosage: 10 G, BIW
     Route: 058
     Dates: start: 20250325
  2. HIZENTRA [Suspect]
     Active Substance: HUMAN IMMUNOGLOBULIN G
     Dosage: 25 G, QW((INFUSING 3 X 10G INFUSIONS ONE WEEK ALTERNATING WITH 2 X 10G INFUSIONS THE OTHER)
     Route: 058
     Dates: start: 20250325
  3. INSULIN NOS [Concomitant]
     Active Substance: INSULIN NOS
     Indication: Product used for unknown indication
     Route: 065

REACTIONS (5)
  - Haemoglobin decreased [Unknown]
  - Infusion site erythema [Unknown]
  - Infusion site swelling [Unknown]
  - Off label use [Unknown]
  - Therapy change [Unknown]

NARRATIVE: CASE EVENT DATE: 20250325
